FAERS Safety Report 7084103-1 (Version None)
Quarter: 2010Q4

REPORT INFORMATION
  Report Type: 
  Country: None (occurrence: None)
  Receive Date: 20101026
  Receipt Date: 20101015
  Transmission Date: 20110411
  Serious: Yes (Hospitalization, Other)
  Sender: FDA-Public Use
  Company Number: 2009AC000135

PATIENT
  Age: 57 Year
  Sex: Female

DRUGS (34)
  1. DIGOXIN [Suspect]
     Indication: PRODUCT USED FOR UNKNOWN INDICATION
     Dosage: 0.25 MG;QD;PO
     Route: 048
     Dates: start: 20020301
  2. DIGOXIN [Suspect]
     Indication: PRODUCT USED FOR UNKNOWN INDICATION
     Dosage: 0.125 MG;QD;PO
     Route: 048
     Dates: start: 20050701
  3. ACETAMINOPHEN [Concomitant]
  4. NITROGLYCERIN [Concomitant]
  5. FUROSEMIDE [Concomitant]
  6. CAPTOPRIL [Concomitant]
  7. PREMARIN [Concomitant]
  8. POTASSIUM CL [Concomitant]
  9. LOVASTATIN [Concomitant]
  10. GEMFIBROZIL [Concomitant]
  11. ACIPHEX [Concomitant]
  12. KLOR-CON [Concomitant]
  13. NITROLINGUAL [Concomitant]
  14. SULINDAC [Concomitant]
  15. ASPIRIN [Concomitant]
  16. ALDACTONE [Concomitant]
  17. ALBUTEROL [Concomitant]
  18. LOPID [Concomitant]
  19. CLARITIN [Concomitant]
  20. NITROSTAT [Concomitant]
  21. EPIPEN [Concomitant]
  22. PROAIR HFA [Concomitant]
  23. SPIRONOLACTONE [Concomitant]
  24. HYDROCODONE [Concomitant]
  25. PROMETHAZINE [Concomitant]
  26. COREG [Concomitant]
  27. PRAVADIOL [Concomitant]
  28. XANAX [Concomitant]
  29. DOLOBID [Concomitant]
  30. LISINOPRIL [Concomitant]
  31. TOPROL-XL [Concomitant]
  32. MEVACOR [Concomitant]
  33. SOLU-MEDROL [Concomitant]
  34. TORADOL [Concomitant]

REACTIONS (35)
  - ABDOMINAL DISTENSION [None]
  - AORTIC VALVE INCOMPETENCE [None]
  - ARTHRALGIA [None]
  - ASTHENIA [None]
  - BACK PAIN [None]
  - CARDIAC FAILURE CONGESTIVE [None]
  - CARDIOMEGALY [None]
  - CARDIOMYOPATHY [None]
  - CHEST PAIN [None]
  - CHOLELITHIASIS [None]
  - CONDITION AGGRAVATED [None]
  - COUGH [None]
  - DECREASED APPETITE [None]
  - DILATATION VENTRICULAR [None]
  - DIZZINESS [None]
  - DYSPNOEA [None]
  - ECONOMIC PROBLEM [None]
  - EJECTION FRACTION DECREASED [None]
  - FATIGUE [None]
  - HEART RATE IRREGULAR [None]
  - LEFT ATRIAL DILATATION [None]
  - LEFT VENTRICULAR DYSFUNCTION [None]
  - MITRAL VALVE INCOMPETENCE [None]
  - MULTIPLE INJURIES [None]
  - NAUSEA [None]
  - OEDEMA [None]
  - OEDEMA PERIPHERAL [None]
  - PALPITATIONS [None]
  - PLEURAL EFFUSION [None]
  - PULMONARY HYPERTENSION [None]
  - SINUS TACHYCARDIA [None]
  - STRESS [None]
  - SURGERY [None]
  - VISUAL IMPAIRMENT [None]
  - VOMITING [None]
